FAERS Safety Report 21916651 (Version 5)
Quarter: 2023Q1

REPORT INFORMATION
  Report Type: Spontaneous
  Country: LT (occurrence: LT)
  Receive Date: 20230126
  Receipt Date: 20230306
  Transmission Date: 20230418
  Serious: Yes (Life-Threatening, Other)
  Sender: FDA-Public Use
  Company Number: LT-MYLANLABS-2023M1007382

PATIENT
  Age: 43 Year
  Sex: Male

DRUGS (21)
  1. CLOZAPINE [Suspect]
     Active Substance: CLOZAPINE
     Indication: Schizophrenia
     Dosage: 150 MILLIGRAM, QD (150 MG/DAY)
     Route: 048
     Dates: start: 2007, end: 2007
  2. CLOZAPINE [Suspect]
     Active Substance: CLOZAPINE
     Dosage: 200 MILLIGRAM, QD (200 MG/DAY)
     Route: 048
     Dates: start: 2018
  3. OLANZAPINE [Suspect]
     Active Substance: OLANZAPINE
     Indication: Schizophrenia
     Dosage: 15 MILLIGRAM, QD
     Route: 065
     Dates: start: 2007
  4. OLANZAPINE [Suspect]
     Active Substance: OLANZAPINE
     Dosage: 10 MILLIGRAM, QD, 10 MG, QD
     Route: 065
     Dates: start: 2007
  5. OLANZAPINE [Suspect]
     Active Substance: OLANZAPINE
     Dosage: 20 MILLIGRAM, QD, 20 MG, QD
     Route: 065
     Dates: start: 2007
  6. OLANZAPINE [Suspect]
     Active Substance: OLANZAPINE
     Dosage: 10 MILLIGRAM, QD
     Route: 065
     Dates: start: 2019
  7. OLANZAPINE [Suspect]
     Active Substance: OLANZAPINE
     Dosage: 20 MILLIGRAM, QD, TABLETS
     Route: 048
     Dates: start: 201901
  8. TRIHEXYPHENIDYL [Suspect]
     Active Substance: TRIHEXYPHENIDYL
     Indication: Parkinson^s disease
     Dosage: 6 MILLIGRAM, QD
     Route: 065
     Dates: start: 2007
  9. TRIHEXYPHENIDYL [Suspect]
     Active Substance: TRIHEXYPHENIDYL
     Indication: Extrapyramidal disorder
     Dosage: 6 MILLIGRAM, QD (2-6 MG, QD)
     Route: 065
     Dates: start: 201904
  10. TRIHEXYPHENIDYL [Suspect]
     Active Substance: TRIHEXYPHENIDYL
     Indication: Schizophrenia
     Dosage: 2 MG, QD, (2-6 MG)
     Route: 065
     Dates: start: 201904
  11. CHLORPROMAZINE [Suspect]
     Active Substance: CHLORPROMAZINE
     Indication: Schizophrenia
     Dosage: 50 MILLIGRAM/DAY ADMINISTERED ON DEMAND
     Route: 065
  12. CHLORPROMAZINE [Suspect]
     Active Substance: CHLORPROMAZINE
     Dosage: UNK,SOLUTION 2.0 INTRAMUSCULARLY
     Route: 030
     Dates: start: 201904
  13. HALOPERIDOL [Concomitant]
     Active Substance: HALOPERIDOL
     Indication: Affective disorder
     Dosage: 50 MILLIGRAM, Q3W
     Route: 030
     Dates: start: 2007
  14. HALOPERIDOL [Concomitant]
     Active Substance: HALOPERIDOL
     Indication: Mental disorder
     Dosage: 70.52 MILLIGRAM PER MILLILITRE, MONTHLY
     Route: 030
     Dates: start: 2018
  15. HALOPERIDOL [Concomitant]
     Active Substance: HALOPERIDOL
     Indication: Schizophrenia
     Dosage: 0.5%. 1.0 ,2 TIMES A DAY
     Route: 030
     Dates: start: 201901
  16. HALOPERIDOL [Concomitant]
     Active Substance: HALOPERIDOL
     Dosage: 70.52 MG/ML ONCE EVERY 2 WEEK FROM APR ONWARDS
     Route: 030
     Dates: start: 201904
  17. HALOPERIDOL [Concomitant]
     Active Substance: HALOPERIDOL
     Dosage: 50 MILLIGRAM, MONTHLY
     Route: 030
  18. CHLORPROTHIXENE [Concomitant]
     Active Substance: CHLORPROTHIXENE
     Indication: Psychotic disorder
     Dosage: 50 MILLIGRAM, QD
     Route: 065
     Dates: start: 2019
  19. CHLORPROTHIXENE [Concomitant]
     Active Substance: CHLORPROTHIXENE
     Indication: Schizophrenia
     Dosage: 50 MILLIGRAM, QD
     Route: 065
     Dates: start: 201904
  20. CHLORPROMAZINE [Concomitant]
     Active Substance: CHLORPROMAZINE
     Indication: Schizophrenia
     Dosage: 2 MILLILITER, QD
     Route: 030
     Dates: start: 2019
  21. CHLORPROMAZINE [Concomitant]
     Active Substance: CHLORPROMAZINE
     Indication: Psychotic disorder

REACTIONS (15)
  - Agranulocytosis [Unknown]
  - Drug intolerance [Unknown]
  - Intestinal pseudo-obstruction [Unknown]
  - Carcinoid tumour in the large intestine [Unknown]
  - Gastrointestinal carcinoma [Unknown]
  - Gastric ulcer [Unknown]
  - Ileus paralytic [Unknown]
  - Hepatitis [Unknown]
  - Leukopenia [Unknown]
  - Megacolon [Unknown]
  - Cholelithiasis [Unknown]
  - Gastritis [Unknown]
  - Anaemia vitamin B12 deficiency [Unknown]
  - Off label use [Unknown]
  - Product use in unapproved indication [Unknown]

NARRATIVE: CASE EVENT DATE: 20190101
